FAERS Safety Report 4983124-X (Version None)
Quarter: 2006Q2

REPORT INFORMATION
  Report Type: 
  Country: None (occurrence: None)
  Receive Date: 20060420
  Receipt Date: 20060410
  Transmission Date: 20061013
  Serious: Yes (Disabling)
  Sender: FDA-Public Use
  Company Number: 2006050111

PATIENT
  Sex: Male

DRUGS (3)
  1. ZOLOFT [Suspect]
     Indication: STRESS
     Dosage: 100 MG (100 MG, 1 IN 1 D), ORAL
     Route: 048
  2. ASPIRIN [Concomitant]
  3. ALTACE [Concomitant]

REACTIONS (9)
  - ABASIA [None]
  - ANXIETY [None]
  - BRONCHITIS [None]
  - CONDITION AGGRAVATED [None]
  - DYSPNOEA [None]
  - ECONOMIC PROBLEM [None]
  - FRUSTRATION [None]
  - LUNG DISORDER [None]
  - WHEEZING [None]
